FAERS Safety Report 9540276 (Version 1)
Quarter: 2013Q2

REPORT INFORMATION
  Report Type: Spontaneous
  Country: None (occurrence: None)
  Receive Date: 20130529
  Receipt Date: 20130529
  Transmission Date: 20140414
  Serious: Yes (Other)
  Sender: FDA-Public Use
  Company Number: EUS-2012-00793

PATIENT
  Sex: 0

DRUGS (1)
  1. QUADRAMET (SAMARIUM (153 SM) LEXIDRONAM) [Suspect]
     Indication: METASTATIC PAIN
     Dosage: 2940 +/- 545 MBQ

REACTIONS (2)
  - Leukopenia [None]
  - Platelet count decreased [None]
